FAERS Safety Report 9292969 (Version 1)
Quarter: 2013Q2

REPORT INFORMATION
  Report Type: Spontaneous
  Country: FR (occurrence: FR)
  Receive Date: 20130516
  Receipt Date: 20130516
  Transmission Date: 20140414
  Serious: Yes (Death)
  Sender: FDA-Public Use
  Company Number: FR-PFIZER INC-2013150893

PATIENT
  Age: 59 Year
  Sex: Male

DRUGS (2)
  1. ATROPINE SULFATE [Suspect]
     Indication: CARDIAC ARREST
     Dosage: UNK
  2. ADRENALINE [Concomitant]
     Indication: CARDIAC ARREST

REACTIONS (1)
  - Toxicity to various agents [Fatal]
